FAERS Safety Report 6155084-X (Version None)
Quarter: 2009Q2

REPORT INFORMATION
  Report Type: 
  Country: None (occurrence: None)
  Receive Date: 20090410
  Receipt Date: 20090330
  Transmission Date: 20091009
  Serious: Yes (Death, Life-Threatening, Other)
  Sender: FDA-Public Use
  Company Number: ADE2009-0529

PATIENT
  Age: 1 Day

DRUGS (6)
  1. CEFTRIAXONE INJECTABLE [Suspect]
     Dosage: 200MG - Q24 HOURS - IV
     Route: 042
  2. CALCIUM GLUCONATE [Suspect]
     Dosage: 10% - UNK - IV
     Route: 042
  3. VITAMIN K1 [Concomitant]
  4. AMIKACIN [Concomitant]
  5. ALBUMIN (HUMAN) [Concomitant]
  6. AMOXICILLIN [Concomitant]

REACTIONS (5)
  - CARDIO-RESPIRATORY ARREST [None]
  - DEATH NEONATAL [None]
  - IMMEDIATE POST-INJECTION REACTION [None]
  - PRODUCT QUALITY ISSUE [None]
  - PULMONARY EMBOLISM [None]
